FAERS Safety Report 7403339-0 (Version None)
Quarter: 2011Q2

REPORT INFORMATION
  Report Type: 
  Country: None (occurrence: None)
  Receive Date: 20110408
  Receipt Date: 20110329
  Transmission Date: 20111010
  Serious: Yes (Hospitalization)
  Sender: FDA-Public Use
  Company Number: US-JNJFOC-20110312857

PATIENT
  Age: 23 Year
  Sex: Female
  Weight: 61.1 kg

DRUGS (1)
  1. PARACETAMOL/DIPHENHYDRAMINE [Suspect]
     Indication: PRODUCT USED FOR UNKNOWN INDICATION

REACTIONS (5)
  - SELF INJURIOUS BEHAVIOUR [None]
  - VOMITING [None]
  - INTENTIONAL OVERDOSE [None]
  - NAUSEA [None]
  - ASPARTATE AMINOTRANSFERASE INCREASED [None]
